FAERS Safety Report 14465189 (Version 1)
Quarter: 2018Q1

REPORT INFORMATION
  Report Type: Other
  Country: US (occurrence: US)
  Receive Date: 20180130
  Receipt Date: 20180130
  Transmission Date: 20180509
  Serious: No
  Sender: FDA-Public Use
  Company Number: US-ACORDA-ACO_136901_2017

PATIENT

DRUGS (1)
  1. AMPYRA [Suspect]
     Active Substance: DALFAMPRIDINE
     Indication: PRODUCT USED FOR UNKNOWN INDICATION
     Dosage: UNK
     Route: 065
     Dates: start: 20170411, end: 20170416

REACTIONS (10)
  - Insomnia [Unknown]
  - Pain in extremity [Unknown]
  - Nausea [Unknown]
  - Paraesthesia [Unknown]
  - Productive cough [Unknown]
  - Back pain [Unknown]
  - Asthenia [Unknown]
  - Gait disturbance [Unknown]
  - Constipation [Unknown]
  - Dizziness [Unknown]
